FAERS Safety Report 16213012 (Version 5)
Quarter: 2020Q4

REPORT INFORMATION
  Report Type: Report from Study
  Country: JP (occurrence: JP)
  Receive Date: 20190418
  Receipt Date: 20201125
  Transmission Date: 20210113
  Serious: Yes (Death, Life-Threatening, Hospitalization)
  Sender: FDA-Public Use
  Company Number: JP-EISAI MEDICAL RESEARCH-EC-2019-055105

PATIENT
  Age: 82 Year
  Sex: Male
  Weight: 68 kg

DRUGS (4)
  1. RIFXIMA [Concomitant]
     Active Substance: RIFAXIMIN
     Indication: HEPATIC ENCEPHALOPATHY
     Route: 065
  2. LENVIMA [Suspect]
     Active Substance: LENVATINIB
     Route: 048
     Dates: start: 20181021, end: 20181119
  3. MORIHEPAMIN [Concomitant]
     Indication: HEPATIC FAILURE
     Route: 065
  4. LENVIMA [Suspect]
     Active Substance: LENVATINIB
     Indication: HEPATOCELLULAR CARCINOMA
     Route: 048
     Dates: start: 20181018, end: 20181020

REACTIONS (3)
  - Portal vein thrombosis [Not Recovered/Not Resolved]
  - Hepatic failure [Fatal]
  - Hepatic encephalopathy [Recovered/Resolved]

NARRATIVE: CASE EVENT DATE: 20181021
